FAERS Safety Report 10735823 (Version 1)
Quarter: 2015Q1

REPORT INFORMATION
  Report Type: Spontaneous
  Country: JP (occurrence: None)
  Receive Date: 20150121
  Receipt Date: 20150121
  Transmission Date: 20150721
  Serious: Yes (Other)
  Sender: FDA-Public Use
  Company Number: JP-DEXPHARM-20150010

PATIENT
  Age: 29 Year
  Sex: Female

DRUGS (1)
  1. CHLORHEXIDINE ALCOHOL [Suspect]
     Active Substance: ALCOHOL\CHLORHEXIDINE GLUCONATE
     Indication: PREOPERATIVE CARE

REACTIONS (5)
  - Procedural complication [None]
  - Burns third degree [None]
  - Burns second degree [None]
  - Skin graft [None]
  - Accident [None]
